FAERS Safety Report 18235271 (Version 2)
Quarter: 2020Q4

REPORT INFORMATION
  Report Type: Spontaneous
  Country: DE (occurrence: DE)
  Receive Date: 20200904
  Receipt Date: 20201020
  Transmission Date: 20210113
  Serious: Yes (Other)
  Sender: FDA-Public Use
  Company Number: DE-AUROBINDO-AUR-APL-2019-052252

PATIENT
  Age: 71 Year
  Sex: Male

DRUGS (32)
  1. MOXIFLOXACIN. [Suspect]
     Active Substance: MOXIFLOXACIN
     Indication: ENDOPHTHALMITIS
  2. CYCLOPENTOLATE. [Suspect]
     Active Substance: CYCLOPENTOLATE
     Indication: STAPHYLOCOCCAL INFECTION
  3. MINOCYCLINE [Suspect]
     Active Substance: MINOCYCLINE HYDROCHLORIDE
     Indication: STAPHYLOCOCCAL INFECTION
  4. CYCLOPENTOLATE. [Suspect]
     Active Substance: CYCLOPENTOLATE
     Indication: ENDOPHTHALMITIS
  5. GRAMICIDIN;NEOMYCIN;POLYMYXIN B [Suspect]
     Active Substance: GRAMICIDIN\NEOMYCIN\POLYMYXIN B SULFATE
     Indication: ENDOPHTHALMITIS
  6. VANCOMYCIN [Suspect]
     Active Substance: VANCOMYCIN
     Indication: ENDOPHTHALMITIS
  7. CEFTAZIDIME. [Suspect]
     Active Substance: CEFTAZIDIME
     Indication: ENDOPHTHALMITIS
  8. DEXAMETHASONE. [Suspect]
     Active Substance: DEXAMETHASONE
     Indication: ENDOPHTHALMITIS
  9. GRAMICIDIN;NEOMYCIN [Suspect]
     Active Substance: GRAMICIDIN\NEOMYCIN SULFATE
     Indication: STAPHYLOCOCCAL INFECTION
  10. TIMOLOL. [Suspect]
     Active Substance: TIMOLOL
     Indication: STAPHYLOCOCCAL INFECTION
  11. CEFTAZIDIME. [Suspect]
     Active Substance: CEFTAZIDIME
     Indication: STAPHYLOCOCCAL INFECTION
  12. CYCLOPENTOLATE. [Suspect]
     Active Substance: CYCLOPENTOLATE
     Indication: ULCERATIVE KERATITIS
     Dosage: UNK
     Route: 061
  13. TIMOLOL. [Suspect]
     Active Substance: TIMOLOL
     Indication: ULCERATIVE KERATITIS
     Dosage: UNK
     Route: 061
  14. MOXIFLOXACIN. [Suspect]
     Active Substance: MOXIFLOXACIN
     Indication: STAPHYLOCOCCAL INFECTION
  15. CEFTAZIDIME. [Suspect]
     Active Substance: CEFTAZIDIME
     Indication: ULCERATIVE KERATITIS
     Dosage: UNK
  16. DEXAMETHASONE. [Suspect]
     Active Substance: DEXAMETHASONE
     Indication: ULCERATIVE KERATITIS
     Dosage: UNK
     Route: 061
  17. TIMOLOL. [Suspect]
     Active Substance: TIMOLOL
     Indication: ENDOPHTHALMITIS
  18. VANCOMYCIN [Suspect]
     Active Substance: VANCOMYCIN
     Indication: ULCERATIVE KERATITIS
     Dosage: UNK
  19. DEXPANTHENOL. [Concomitant]
     Active Substance: DEXPANTHENOL
     Indication: PRODUCT USED FOR UNKNOWN INDICATION
     Dosage: 5 PERCENT
     Route: 061
  20. GRAMICIDIN;NEOMYCIN;POLYMYXIN B [Suspect]
     Active Substance: GRAMICIDIN\NEOMYCIN\POLYMYXIN B SULFATE
     Indication: ULCERATIVE KERATITIS
     Dosage: UNK
     Route: 061
  21. MINOCYCLINE [Suspect]
     Active Substance: MINOCYCLINE HYDROCHLORIDE
     Indication: ULCERATIVE KERATITIS
     Dosage: UNK
     Route: 048
  22. MINOCYCLINE [Suspect]
     Active Substance: MINOCYCLINE HYDROCHLORIDE
     Indication: ENDOPHTHALMITIS
  23. VANCOMYCIN [Suspect]
     Active Substance: VANCOMYCIN
     Indication: STAPHYLOCOCCAL INFECTION
  24. LEVOFLOXACIN. [Suspect]
     Active Substance: LEVOFLOXACIN
     Indication: ULCERATIVE KERATITIS
     Dosage: UNK
     Route: 061
  25. LEVOFLOXACIN. [Suspect]
     Active Substance: LEVOFLOXACIN
     Indication: STAPHYLOCOCCAL INFECTION
  26. LEVOFLOXACIN. [Suspect]
     Active Substance: LEVOFLOXACIN
     Indication: ENDOPHTHALMITIS
  27. GRAMICIDIN;NEOMYCIN [Suspect]
     Active Substance: GRAMICIDIN\NEOMYCIN SULFATE
     Indication: ENDOPHTHALMITIS
     Dosage: UNK
     Route: 061
  28. MOXIFLOXACIN. [Suspect]
     Active Substance: MOXIFLOXACIN
     Indication: ULCERATIVE KERATITIS
     Dosage: UNK
     Route: 048
  29. DEXAMETHASONE. [Suspect]
     Active Substance: DEXAMETHASONE
     Indication: STAPHYLOCOCCAL INFECTION
  30. GRAMICIDIN;NEOMYCIN [Suspect]
     Active Substance: GRAMICIDIN\NEOMYCIN SULFATE
     Indication: ULCERATIVE KERATITIS
  31. GRAMICIDIN;NEOMYCIN;POLYMYXIN B [Suspect]
     Active Substance: GRAMICIDIN\NEOMYCIN\POLYMYXIN B SULFATE
     Indication: STAPHYLOCOCCAL INFECTION
  32. PROXYMETACAINE [Concomitant]
     Active Substance: PROPARACAINE HYDROCHLORIDE
     Indication: ANAESTHESIA
     Dosage: UNK
     Route: 065

REACTIONS (1)
  - Drug ineffective [Unknown]
